FAERS Safety Report 4381066-4 (Version None)
Quarter: 2004Q2

REPORT INFORMATION
  Report Type: 
  Country: None (occurrence: None)
  Receive Date: 20040601
  Receipt Date: 20040316
  Transmission Date: 20050107
  Serious: No
  Sender: FDA-Public Use
  Company Number: FABR-10506

PATIENT
  Age: 35 Year
  Sex: Male
  Weight: 91.8 kg

DRUGS (10)
  1. FABRAZYME [Suspect]
     Indication: FABRY'S DISEASE
     Dosage: 105 MG Q2WKS IV
     Route: 042
     Dates: start: 20031220, end: 20040316
  2. TEGRETOL [Concomitant]
  3. TYLENOL [Concomitant]
  4. BENADRYL [Concomitant]
  5. SOLU-CORTEF [Concomitant]
  6. PERCOCET [Concomitant]
  7. MULTIVITAMIN ^LAPPE^ [Concomitant]
  8. ASPIRIN [Concomitant]
  9. AMITRIPTYLINE HCL [Concomitant]
  10. MARIJUANA [Concomitant]

REACTIONS (3)
  - CHILLS [None]
  - OXYGEN SATURATION DECREASED [None]
  - TACHYCARDIA [None]
